FAERS Safety Report 6202988-5 (Version None)
Quarter: 2009Q2

REPORT INFORMATION
  Report Type: 
  Country: None (occurrence: None)
  Receive Date: 20090520
  Receipt Date: 20090504
  Transmission Date: 20091009
  Serious: Yes (Hospitalization, Other)
  Sender: FDA-Public Use
  Company Number: 20090160

PATIENT
  Age: 68 Year
  Sex: Female

DRUGS (1)
  1. EPINEPHRINE [Suspect]
     Indication: SCLEROTHERAPY
     Dosage: 12 ML INJ/HYPERTONIC ; NACL/EPI
     Route: 042

REACTIONS (8)
  - ANAEMIA [None]
  - ARTERIAL OCCLUSIVE DISEASE [None]
  - ARTERIOSCLEROSIS [None]
  - CONDITION AGGRAVATED [None]
  - PYREXIA [None]
  - SPLENIC ABSCESS [None]
  - SPLENIC INFARCTION [None]
  - SPLENIC NECROSIS [None]
